FAERS Safety Report 23764487 (Version 2)
Quarter: 2024Q4

REPORT INFORMATION
  Report Type: Spontaneous
  Country: CH (occurrence: CH)
  Receive Date: 20240420
  Receipt Date: 20241012
  Transmission Date: 20250115
  Serious: Yes (Other)
  Sender: TEVA
  Company Number: CH-TEVA-VS-3183676

PATIENT
  Age: 21 Year
  Sex: Female

DRUGS (4)
  1. VENLAFAXINE HYDROCHLORIDE [Suspect]
     Active Substance: VENLAFAXINE HYDROCHLORIDE
     Indication: Prophylaxis
     Dosage: (ER) CAPSULES) , DAILY IN THE MORNING
     Route: 048
  2. VENLAFAXINE HYDROCHLORIDE [Suspect]
     Active Substance: VENLAFAXINE HYDROCHLORIDE
     Indication: Prophylaxis
     Dosage: (ER) CAPSULES) , DAILY IN THE MORNING
     Route: 048
  3. VENLAFAXINE HYDROCHLORIDE [Suspect]
     Active Substance: VENLAFAXINE HYDROCHLORIDE
     Indication: Prophylaxis
     Dosage: (ER) CAPSULES)
     Route: 048
  4. VENLAFAXINE HYDROCHLORIDE [Suspect]
     Active Substance: VENLAFAXINE HYDROCHLORIDE
     Indication: Prophylaxis
     Dosage: (ER) CAPSULES)
     Route: 048

REACTIONS (4)
  - Electric shock sensation [Unknown]
  - Product dose omission in error [Unknown]
  - Product residue present [Unknown]
  - Night sweats [Unknown]

NARRATIVE: CASE EVENT DATE: 20231101
